FAERS Safety Report 11057160 (Version 1)
Quarter: 2015Q2

REPORT INFORMATION
  Report Type: Spontaneous
  Country: US (occurrence: US)
  Receive Date: 20150422
  Receipt Date: 20150422
  Transmission Date: 20150821
  Serious: Yes (Hospitalization, Other)
  Sender: FDA-Public Use
  Company Number: US-PFIZER INC-2015132832

PATIENT
  Age: 59 Year
  Sex: Male

DRUGS (6)
  1. DILANTIN [Suspect]
     Active Substance: PHENYTOIN
     Indication: SEIZURE
     Dosage: 100 MG, 3X/DAY
     Route: 048
     Dates: start: 20130527, end: 20130624
  2. METHYLPREDNISOLONE. [Concomitant]
     Active Substance: METHYLPREDNISOLONE
     Dosage: 4 MG (DOSE PACK), UNK
     Dates: start: 20130614
  3. METHYLPREDNISOLONE. [Concomitant]
     Active Substance: METHYLPREDNISOLONE
     Dosage: 4 MG (DOSE PACK), UNK
     Dates: start: 20130620
  4. METHOCARBAMOL. [Concomitant]
     Active Substance: METHOCARBAMOL
     Dosage: 750 MG, UNK
     Dates: start: 20130614
  5. DIVALPROEX SODIUM. [Concomitant]
     Active Substance: DIVALPROEX SODIUM
     Dosage: 500 MG, UNK
     Dates: start: 20130620
  6. HYDROCODONE BITARTRATE AND ACETAMINOPHEN [Concomitant]
     Active Substance: ACETAMINOPHEN\HYDROCODONE BITARTRATE
     Dosage: 7.5-325 MG, UNK,
     Dates: start: 20130614

REACTIONS (1)
  - Stevens-Johnson syndrome [Unknown]

NARRATIVE: CASE EVENT DATE: 20130624
